FAERS Safety Report 9535090 (Version 1)
Quarter: 2013Q3

REPORT INFORMATION
  Report Type: Spontaneous
  Country: NL (occurrence: NL)
  Receive Date: 20130918
  Receipt Date: 20130918
  Transmission Date: 20140515
  Serious: Yes (Other)
  Sender: FDA-Public Use
  Company Number: NL-MYLANLABS-2013S1020126

PATIENT
  Age: 61 Year
  Sex: Female
  Weight: 90 kg

DRUGS (2)
  1. TERBINAFINE [Suspect]
     Indication: FUNGAL INFECTION
     Dosage: 1 KEER PER DAG 1 STUK(S)
     Route: 048
     Dates: start: 20130808
  2. CUTIVATE [Concomitant]
     Indication: PRODUCT USED FOR UNKNOWN INDICATION
     Route: 003
     Dates: start: 20130808

REACTIONS (1)
  - Deafness [Not Recovered/Not Resolved]
